FAERS Safety Report 19448869 (Version 1)
Quarter: 2021Q2

REPORT INFORMATION
  Report Type: Spontaneous
  Country: US (occurrence: US)
  Receive Date: 20210622
  Receipt Date: 20210622
  Transmission Date: 20210717
  Serious: No
  Sender: FDA-Public Use
  Company Number: US-PFIZER INC-2021289285

PATIENT
  Age: 61 Year
  Sex: Male

DRUGS (2)
  1. RUXIENCE [Suspect]
     Active Substance: RITUXIMAB-PVVR
     Indication: CHEMOTHERAPY
  2. RUXIENCE [Suspect]
     Active Substance: RITUXIMAB-PVVR
     Indication: B-CELL LYMPHOMA
     Dosage: UNK

REACTIONS (2)
  - Therapeutic product effect incomplete [Unknown]
  - Poor quality sleep [Unknown]
